FAERS Safety Report 12221235 (Version 1)
Quarter: 2016Q1

REPORT INFORMATION
  Report Type: Spontaneous
  Country: US (occurrence: None)
  Receive Date: 20160329
  Receipt Date: 20160329
  Transmission Date: 20160526
  Serious: No
  Sender: FDA-Public Use
  Company Number: None

PATIENT
  Age: 35 Year
  Sex: Female
  Weight: 65.32 kg

DRUGS (2)
  1. NORDIC NATURALS FISH OIL [Concomitant]
  2. MIRENA [Suspect]
     Active Substance: LEVONORGESTREL
     Dates: start: 20160211

REACTIONS (4)
  - Vaginal haemorrhage [None]
  - Abdominal pain upper [None]
  - Pain [None]
  - Alopecia [None]

NARRATIVE: CASE EVENT DATE: 20160301
